FAERS Safety Report 7687891-6 (Version None)
Quarter: 2011Q3

REPORT INFORMATION
  Report Type: 
  Country: None (occurrence: None)
  Receive Date: 20110816
  Receipt Date: 20110816
  Transmission Date: 20111222
  Serious: Yes (Life-Threatening)
  Sender: FDA-Public Use
  Company Number: None

PATIENT
  Sex: Male
  Weight: 97.5234 kg

DRUGS (1)
  1. HUMULIN N [Suspect]
     Dosage: IV
     Route: 042

REACTIONS (4)
  - MEMORY IMPAIRMENT [None]
  - ROAD TRAFFIC ACCIDENT [None]
  - PRODUCT QUALITY ISSUE [None]
  - LOSS OF CONSCIOUSNESS [None]
